FAERS Safety Report 21949098 (Version 4)
Quarter: 2023Q2

REPORT INFORMATION
  Report Type: Spontaneous
  Country: US (occurrence: US)
  Receive Date: 20230203
  Receipt Date: 20230403
  Transmission Date: 20230722
  Serious: No
  Sender: FDA-Public Use
  Company Number: US-UNITED THERAPEUTICS-UNT-2023-000794

PATIENT
  Age: 77 Year
  Sex: Female

DRUGS (12)
  1. REMODULIN [Suspect]
     Active Substance: TREPROSTINIL
     Indication: Pulmonary arterial hypertension
     Dosage: 0.010 ?G/KG, CONTINUING
     Route: 058
     Dates: start: 202301
  2. REMODULIN [Suspect]
     Active Substance: TREPROSTINIL
     Dosage: 0.0117 ?G/KG, CONTINUING
     Route: 058
     Dates: start: 202301
  3. REMODULIN [Suspect]
     Active Substance: TREPROSTINIL
     Dosage: 0.01357 ?G/KG, CONTINUING
     Route: 058
     Dates: start: 202301
  4. REMODULIN [Suspect]
     Active Substance: TREPROSTINIL
     Dosage: UNK, CONTINUING
     Route: 058
     Dates: start: 202301
  5. REMODULIN [Suspect]
     Active Substance: TREPROSTINIL
     Indication: Pulmonary arterial hypertension
     Dosage: UNK, CONTINUING
     Route: 041
     Dates: start: 20230103
  6. TYVASO DPI [Suspect]
     Active Substance: TREPROSTINIL
     Indication: Pulmonary arterial hypertension
     Dosage: 16 ?G, QID
  7. TYVASO DPI [Suspect]
     Active Substance: TREPROSTINIL
     Dosage: 48 ?G, QID
  8. TYVASO DPI [Suspect]
     Active Substance: TREPROSTINIL
     Dosage: 32 ?G, QID
  9. TYVASO DPI [Suspect]
     Active Substance: TREPROSTINIL
     Dosage: UNK
     Dates: start: 20221020
  10. TYVASO DPI [Suspect]
     Active Substance: TREPROSTINIL
     Indication: Pulmonary arterial hypertension
     Dosage: UNK
  11. TYVASO DPI [Suspect]
     Active Substance: TREPROSTINIL
     Indication: Pulmonary arterial hypertension
     Dosage: UNK
  12. TYVASO DPI [Suspect]
     Active Substance: TREPROSTINIL
     Indication: Pulmonary arterial hypertension

REACTIONS (11)
  - Headache [Recovering/Resolving]
  - Constipation [Unknown]
  - Pain [Unknown]
  - Arthralgia [Unknown]
  - Infusion site pain [Recovering/Resolving]
  - Oxygen consumption increased [Unknown]
  - Device failure [Recovered/Resolved]
  - Pain in jaw [Unknown]
  - Paraesthesia [Unknown]
  - Device wireless communication issue [Recovered/Resolved]
  - Device use issue [Unknown]

NARRATIVE: CASE EVENT DATE: 20230101
